FAERS Safety Report 4501819-9 (Version None)
Quarter: 2004Q4

REPORT INFORMATION
  Report Type: 
  Country: None (occurrence: None)
  Receive Date: 20041115
  Receipt Date: 20041115
  Transmission Date: 20050328
  Serious: Yes (Hospitalization)
  Sender: FDA-Public Use
  Company Number: None

PATIENT
  Age: 51 Year
  Sex: Male
  Weight: 64.8 kg

DRUGS (11)
  1. ATAZANAVIR SO4 [Suspect]
  2. ATOVAQUONE SUSP [Concomitant]
  3. AZITHROMYCIN [Concomitant]
  4. DIGOXIN [Concomitant]
  5. MULTIVITAMIN WITH MINERALS [Concomitant]
  6. OMEPRAZOLE [Concomitant]
  7. RITONAVIR [Concomitant]
  8. TEMAZEPAM [Concomitant]
  9. EPOGEN [Concomitant]
  10. INSULIN SYRINGES [Concomitant]
  11. IPRATROPIUM/ALBUTEROL [Concomitant]

REACTIONS (2)
  - ABDOMINAL PAIN [None]
  - PANCREATITIS [None]
